FAERS Safety Report 8448800-5 (Version None)
Quarter: 2012Q2

REPORT INFORMATION
  Report Type: 
  Country: None (occurrence: None)
  Receive Date: 20120619
  Receipt Date: 20120614
  Transmission Date: 20120825
  Serious: No
  Sender: FDA-Public Use
  Company Number: US-PFIZER INC-2012143562

PATIENT
  Sex: Female

DRUGS (3)
  1. PRISTIQ [Suspect]
     Dosage: UNK
  2. CYMBALTA [Suspect]
     Dosage: UNK
  3. PAXIL [Suspect]
     Dosage: UNK

REACTIONS (4)
  - MUSCLE TWITCHING [None]
  - ABDOMINAL PAIN UPPER [None]
  - ANXIETY [None]
  - HEADACHE [None]
